FAERS Safety Report 10721325 (Version 2)
Quarter: 2015Q1

REPORT INFORMATION
  Report Type: Spontaneous
  Country: US (occurrence: US)
  Receive Date: 20150119
  Receipt Date: 20150130
  Transmission Date: 20150721
  Serious: No
  Sender: FDA-Public Use
  Company Number: US-009507513-1501USA005281

PATIENT
  Sex: Female
  Weight: 61.22 kg

DRUGS (2)
  1. CLARITIN [Suspect]
     Active Substance: LORATADINE
     Indication: HYPERSENSITIVITY
  2. CLARITIN [Suspect]
     Active Substance: LORATADINE
     Indication: INFLUENZA
     Dosage: 10 DF, QD
     Route: 048

REACTIONS (3)
  - Expired product administered [Unknown]
  - Product use issue [Unknown]
  - Epistaxis [Recovered/Resolved]
